FAERS Safety Report 15393565 (Version 2)
Quarter: 2018Q4

REPORT INFORMATION
  Report Type: Report from Study
  Country: MX (occurrence: MX)
  Receive Date: 20180917
  Receipt Date: 20181127
  Transmission Date: 20190204
  Serious: Yes (Other)
  Sender: FDA-Public Use
  Company Number: PHHY2018MX000866

PATIENT
  Age: 63 Year
  Sex: Female
  Weight: 72 kg

DRUGS (9)
  1. GALVUS MET [Suspect]
     Active Substance: METFORMIN HYDROCHLORIDE\VILDAGLIPTIN
     Indication: TYPE 2 DIABETES MELLITUS
     Dosage: 0.5 DF (500 MG METFORMIN HYDROCHLORIDE, 50 MG VILDAGLIPTIN), BID
     Route: 048
     Dates: start: 201710
  2. TOLTERODINE [Concomitant]
     Active Substance: TOLTERODINE
     Indication: HYPERTONIC BLADDER
  3. TAMSULOSIN [Concomitant]
     Active Substance: TAMSULOSIN
     Indication: HYPERTONIC BLADDER
     Dosage: 1 DF, QD (1 YEAR AGO APPROXIMATELY)
     Route: 048
  4. TAMSULOSIN [Concomitant]
     Active Substance: TAMSULOSIN
     Indication: BLADDER DISORDER
  5. LORATADINE. [Concomitant]
     Active Substance: LORATADINE
     Indication: INCONTINENCE
     Dosage: 1 DF, Q12H
     Route: 048
     Dates: start: 20180104
  6. TOLTERODINE [Concomitant]
     Active Substance: TOLTERODINE
     Indication: BLADDER DISORDER
     Dosage: 2 DF (ONE IN MORNING ONE IN NIGHT), QD (1 YEAR AGO APPROXIMATELY)
     Route: 048
  7. TOLTERODINE [Concomitant]
     Active Substance: TOLTERODINE
     Indication: URINARY INCONTINENCE
  8. OMEPRAZOLE. [Concomitant]
     Active Substance: OMEPRAZOLE
     Indication: GASTROINTESTINAL DISORDER
     Dosage: 1 DF, QD (SINCE 6 YEARS AGO)
     Route: 048
  9. INDOMETACINA [Concomitant]
     Active Substance: INDOMETHACIN
     Indication: ARTHRALGIA
     Dosage: 2 DF, QD (SINCE APPROXIMATELY 6 YEARS AGO)
     Route: 065

REACTIONS (7)
  - Arthritis [Recovered/Resolved]
  - Bladder disorder [Unknown]
  - Influenza [Not Recovered/Not Resolved]
  - Cough [Not Recovered/Not Resolved]
  - Renal pain [Recovered/Resolved]
  - Wrong technique in product usage process [Not Recovered/Not Resolved]
  - Arthralgia [Unknown]

NARRATIVE: CASE EVENT DATE: 201710
